FAERS Safety Report 24926544 (Version 1)
Quarter: 2025Q1

REPORT INFORMATION
  Report Type: Spontaneous
  Country: US (occurrence: US)
  Receive Date: 20250205
  Receipt Date: 20250205
  Transmission Date: 20250408
  Serious: No
  Sender: Haleon PLC
  Company Number: US-HALEON-2226242

PATIENT
  Age: 87 Year
  Sex: Male

DRUGS (1)
  1. VOLTAREN ARTHRITIS PAIN [Suspect]
     Active Substance: DICLOFENAC SODIUM
     Indication: Arthritis
     Dates: end: 20250131

REACTIONS (1)
  - Application site exfoliation [Not Recovered/Not Resolved]

NARRATIVE: CASE EVENT DATE: 20250118
